FAERS Safety Report 9746652 (Version 1)
Quarter: 2013Q4

REPORT INFORMATION
  Report Type: Spontaneous
  Country: US (occurrence: US)
  Receive Date: 20131211
  Receipt Date: 20131211
  Transmission Date: 20140711
  Serious: No
  Sender: FDA-Public Use
  Company Number: US-PFIZER INC-2013353645

PATIENT
  Age: 67 Year
  Sex: Female

DRUGS (1)
  1. LIPITOR [Suspect]
     Dosage: 40 MG (BY SPLITTING 80 MG TABLET), DAILY
     Dates: start: 201311, end: 20131128

REACTIONS (2)
  - Gastritis [Recovering/Resolving]
  - Myalgia [Recovering/Resolving]
